FAERS Safety Report 4506767-6 (Version None)
Quarter: 2004Q4

REPORT INFORMATION
  Report Type: 
  Country: None (occurrence: None)
  Receive Date: 20041122
  Receipt Date: 20041026
  Transmission Date: 20050328
  Serious: Yes (Hospitalization)
  Sender: FDA-Public Use
  Company Number: US-ROCHE-384380

PATIENT
  Age: 58 Year
  Sex: Male

DRUGS (8)
  1. CAPECITABINE [Suspect]
     Indication: METASTATIC RENAL CELL CARCINOMA
     Dosage: ADMINISTERED ON DAYS 1 TO 21 OF A 28 DAY CYCLE
     Route: 048
  2. GEMZAR [Suspect]
     Indication: METASTATIC RENAL CELL CARCINOMA
     Dosage: ADMINISTERED ON DAYS 1, 8 AND 15 OF A 28 DAY CYCLE
     Route: 042
     Dates: end: 20041008
  3. LORTAB [Concomitant]
  4. PROTONIX [Concomitant]
     Route: 048
  5. MEGACE [Concomitant]
     Route: 048
  6. SUDAFED S.A. [Concomitant]
  7. COLACE [Concomitant]
  8. AMBIEN [Concomitant]

REACTIONS (17)
  - ABDOMINAL MASS [None]
  - BACTEROIDES BACTERAEMIA [None]
  - BUNDLE BRANCH BLOCK RIGHT [None]
  - COUGH [None]
  - DYSPNOEA [None]
  - FEBRILE NEUTROPENIA [None]
  - INFECTION [None]
  - LUNG CONSOLIDATION [None]
  - LUNG INFILTRATION [None]
  - LUNG NEOPLASM [None]
  - LYMPH NODE CANCER METASTATIC [None]
  - OEDEMA PERIPHERAL [None]
  - PLEURAL EFFUSION [None]
  - PLEURITIC PAIN [None]
  - PNEUMONIA [None]
  - PULMONARY HILUM MASS [None]
  - SINUS TACHYCARDIA [None]
